FAERS Safety Report 4345792-5 (Version None)
Quarter: 2004Q2

REPORT INFORMATION
  Report Type: 
  Country: None (occurrence: None)
  Receive Date: 20040421
  Receipt Date: 20040407
  Transmission Date: 20050107
  Serious: Yes (Other)
  Sender: FDA-Public Use
  Company Number: L04-JPN-01659-01

PATIENT
  Age: 70 Year
  Sex: Female

DRUGS (2)
  1. CARBAMAZEPINE [Suspect]
     Indication: CONVULSION
  2. VALPROATE [Concomitant]

REACTIONS (1)
  - POLYMYALGIA RHEUMATICA [None]
